FAERS Safety Report 6782206-X (Version None)
Quarter: 2010Q2

REPORT INFORMATION
  Report Type: 
  Country: None (occurrence: None)
  Receive Date: 20100615
  Receipt Date: 20100607
  Transmission Date: 20101027
  Serious: Yes (Other)
  Sender: FDA-Public Use
  Company Number: CV20100281

PATIENT
  Age: 12 Year
  Sex: Male

DRUGS (3)
  1. PROPOFOL [Suspect]
     Indication: INDUCTION OF ANAESTHESIA
     Dosage: 150 MG INTRAVENOUS
     Route: 042
  2. FENTANYL [Concomitant]
  3. ISOFLURANE (ISOFLURANE) (ISOFLURANE) [Concomitant]

REACTIONS (7)
  - BRADYCARDIA [None]
  - CARDIAC ARREST [None]
  - DEPRESSED LEVEL OF CONSCIOUSNESS [None]
  - HYPERKALAEMIA [None]
  - HYPOCALCAEMIA [None]
  - RESPIRATORY ARREST [None]
  - RHABDOMYOLYSIS [None]
